FAERS Safety Report 16998217 (Version 1)
Quarter: 2019Q4

REPORT INFORMATION
  Report Type: Spontaneous
  Country: US (occurrence: US)
  Receive Date: 20190925
  Receipt Date: 20190925
  Transmission Date: 20200122
  Serious: Yes (Other)
  Sender: FDA-Public Use
  Company Number: None

PATIENT
  Age: 43 Year
  Sex: Male
  Weight: 70.31 kg

DRUGS (1)
  1. DULOXETINE 30 MG [Suspect]
     Active Substance: DULOXETINE
     Indication: ANXIETY
     Route: 048
     Dates: start: 20140801, end: 20140815

REACTIONS (4)
  - Anxiety [None]
  - Cognitive disorder [None]
  - Heart rate increased [None]
  - General physical health deterioration [None]

NARRATIVE: CASE EVENT DATE: 20140618
